FAERS Safety Report 9458684 (Version 1)
Quarter: 2013Q3

REPORT INFORMATION
  Report Type: Spontaneous
  Country: GB (occurrence: GB)
  Receive Date: 20130814
  Receipt Date: 20130814
  Transmission Date: 20140515
  Serious: Yes (Other)
  Sender: FDA-Public Use
  Company Number: GB-WATSON-2013-14514

PATIENT
  Age: 77 Year
  Sex: Female

DRUGS (5)
  1. METOCLOPRAMIDE (UNKNOWN) [Suspect]
     Indication: NAUSEA
     Dosage: 10 MG, TID
     Route: 048
     Dates: start: 20130627, end: 20130629
  2. ESOMEPRAZOLE [Concomitant]
     Indication: GASTROINTESTINAL DISORDER
     Dosage: 40 MG, UNKNOWN
     Route: 065
  3. QVAR [Concomitant]
     Indication: ASTHMA
     Dosage: UNK, UNKNOWN
     Route: 065
  4. FUROSEMIDE [Concomitant]
     Indication: HYPERTENSION
     Dosage: 20 MG, UNKNOWN
     Route: 065
  5. ATORVASTATIN [Concomitant]
     Indication: HYPERCHOLESTEROLAEMIA
     Dosage: 80 MG, UNK
     Route: 065

REACTIONS (7)
  - Lip swelling [Recovering/Resolving]
  - Discomfort [Recovering/Resolving]
  - Limb discomfort [Recovering/Resolving]
  - Restlessness [Recovering/Resolving]
  - Feeling hot [Recovering/Resolving]
  - Anxiety [Recovering/Resolving]
  - Nervousness [Recovering/Resolving]
